FAERS Safety Report 10037702 (Version 1)
Quarter: 2014Q1

REPORT INFORMATION
  Report Type: Spontaneous
  Country: US (occurrence: None)
  Receive Date: 20140324
  Receipt Date: 20140324
  Transmission Date: 20141002
  Serious: Yes (Other)
  Sender: FDA-Public Use
  Company Number: 2229492

PATIENT
  Age: 67 Year
  Sex: Male
  Weight: 111.82 kg

DRUGS (1)
  1. DEMEROL [Suspect]
     Indication: PAIN
     Route: 042
     Dates: start: 20140226, end: 20140226

REACTIONS (3)
  - Dyspnoea [None]
  - Tracheal disorder [None]
  - Infusion site rash [None]
